FAERS Safety Report 12363884 (Version 1)
Quarter: 2016Q2

REPORT INFORMATION
  Report Type: Spontaneous
  Country: US (occurrence: US)
  Receive Date: 20160512
  Receipt Date: 20160512
  Transmission Date: 20160815
  Serious: No
  Sender: FDA-Public Use
  Company Number: US-UCBSA-2015026424

PATIENT
  Age: 58 Year
  Sex: Female
  Weight: 136 kg

DRUGS (3)
  1. LANTUS [Concomitant]
     Active Substance: INSULIN GLARGINE
     Indication: DIABETES MELLITUS
     Dosage: UNK, AT BED TIME
  2. CIMZIA [Suspect]
     Active Substance: CERTOLIZUMAB PEGOL
     Indication: ANKYLOSING SPONDYLITIS
     Dosage: 400 MG, EV 4 WEEKS, STRENGTH: 200 MG (200 MG II)
     Route: 058
     Dates: start: 201506, end: 201511
  3. HUMALOG [Concomitant]
     Active Substance: INSULIN LISPRO
     Indication: DIABETES MELLITUS
     Dosage: 20, 25 U EVERY MORNING

REACTIONS (7)
  - Onychoclasis [Unknown]
  - Hypersensitivity [Unknown]
  - Pain in extremity [Recovering/Resolving]
  - Urticaria [Recovered/Resolved]
  - Nail disorder [Recovering/Resolving]
  - Blood urine present [Recovered/Resolved]
  - Arthralgia [Not Recovered/Not Resolved]

NARRATIVE: CASE EVENT DATE: 2015
